FAERS Safety Report 6565044-2 (Version None)
Quarter: 2010Q1

REPORT INFORMATION
  Report Type: 
  Country: None (occurrence: None)
  Receive Date: 20100201
  Receipt Date: 20090521
  Transmission Date: 20100710
  Serious: Yes (Other)
  Sender: FDA-Public Use
  Company Number: US-PFIZER INC-2005131884

PATIENT
  Sex: Female

DRUGS (5)
  1. PREMARIN [Suspect]
     Indication: HORMONE REPLACEMENT THERAPY
     Route: 065
  2. PREMPRO [Suspect]
     Indication: HORMONE REPLACEMENT THERAPY
     Route: 065
  3. POTASSIUM [Concomitant]
     Indication: FLUID IMBALANCE
     Dosage: UNK
     Dates: start: 19990101
  4. TRIAM-TIAZIDA R [Concomitant]
     Indication: FLUID IMBALANCE
     Dosage: UNK
     Dates: start: 20000101
  5. DIGITEK [Concomitant]
     Indication: CARDIAC DISORDER
     Dosage: UNK
     Dates: start: 19760101

REACTIONS (1)
  - BREAST CANCER [None]
